FAERS Safety Report 16977409 (Version 1)
Quarter: 2019Q4

REPORT INFORMATION
  Report Type: Spontaneous
  Country: IT (occurrence: IT)
  Receive Date: 20191031
  Receipt Date: 20191031
  Transmission Date: 20200122
  Serious: Yes (Other)
  Sender: FDA-Public Use
  Company Number: IT-SUN PHARMACEUTICAL INDUSTRIES LTD-2019RR-225856

PATIENT
  Age: 66 Year
  Sex: Female

DRUGS (4)
  1. FELISON 30 MG CAPSULE RIGIDE [Suspect]
     Active Substance: FLURAZEPAM MONOHYDROCHLORIDE
     Indication: INTENTIONAL SELF-INJURY
     Dosage: IN TOTAL
     Route: 048
     Dates: start: 20190724, end: 20190724
  2. VERAPAMIL [Concomitant]
     Active Substance: VERAPAMIL HYDROCHLORIDE
     Indication: HYPERTENSION
     Dosage: 40 MILLIGRAM, DAILY
     Route: 048
  3. PREGABALIN. [Suspect]
     Active Substance: PREGABALIN
     Indication: INTENTIONAL SELF-INJURY
     Dosage: IN TOTAL
     Route: 048
     Dates: start: 20190724, end: 20190724
  4. SERTRALINE [Suspect]
     Active Substance: SERTRALINE HYDROCHLORIDE
     Indication: INTENTIONAL SELF-INJURY
     Dosage: IN TOTAL
     Route: 048
     Dates: start: 20190724, end: 20190724

REACTIONS (4)
  - Vertigo [Recovering/Resolving]
  - Agitation [Recovering/Resolving]
  - Vision blurred [Recovering/Resolving]
  - Drug abuse [Recovering/Resolving]

NARRATIVE: CASE EVENT DATE: 20190724
